FAERS Safety Report 10083995 (Version 1)
Quarter: 2014Q2

REPORT INFORMATION
  Report Type: Spontaneous
  Country: GB (occurrence: None)
  Receive Date: 20140415
  Receipt Date: 20140415
  Transmission Date: 20141212
  Serious: Yes (Hospitalization)
  Sender: FDA-Public Use
  Company Number: AUR-APL-2013-01113

PATIENT
  Age: 52 Year
  Sex: Female

DRUGS (3)
  1. RIBAVIRIN [Suspect]
     Indication: HEPATITIS C
     Dosage: 1200 MG (600 MG, 2 IN 1 D)
     Dates: start: 20120821
  2. INCIVO [Suspect]
     Indication: HEPATITIS C
     Dosage: 2250 (750 MG, 1 IN 8 HR)
     Route: 048
     Dates: start: 20120821, end: 20121113
  3. PEGYLATED INTERFERON NOS (INTERFERON) [Concomitant]

REACTIONS (4)
  - Anaemia [None]
  - Malaise [None]
  - Pruritus [None]
  - Rash [None]
